FAERS Safety Report 4924427-4 (Version None)
Quarter: 2006Q1

REPORT INFORMATION
  Report Type: 
  Country: None (occurrence: None)
  Receive Date: 20060227
  Receipt Date: 20060213
  Transmission Date: 20060701
  Serious: Yes (Hospitalization)
  Sender: FDA-Public Use
  Company Number: AU-ROCHE-436027

PATIENT
  Age: 5 Month
  Sex: Female
  Weight: 6.3 kg

DRUGS (3)
  1. CEFTRIAXONE SODIUM [Suspect]
     Route: 042
     Dates: start: 20050227, end: 20050228
  2. GENTAMICIN SULFATE [Suspect]
     Dosage: ONE DOSE UNSPECIFIED DAILY.
     Route: 065
     Dates: start: 20050301, end: 20050302
  3. IBUPROFEN [Suspect]
     Indication: PAIN
     Route: 048

REACTIONS (6)
  - ACIDOSIS [None]
  - ANTIBIOTIC LEVEL ABOVE THERAPEUTIC [None]
  - NEPHRITIS [None]
  - ORAL INTAKE REDUCED [None]
  - PYREXIA [None]
  - VOMITING [None]
